FAERS Safety Report 9229573 (Version 4)
Quarter: 2014Q2

REPORT INFORMATION
  Report Type: Spontaneous
  Country: US (occurrence: US)
  Receive Date: 20130414
  Receipt Date: 20140430
  Transmission Date: 20141212
  Serious: Yes (Hospitalization)
  Sender: FDA-Public Use
  Company Number: US-B.I. PHARMACEUTICALS,INC./RIDGEFIELD-2013-BI-09709BP

PATIENT
  Age: 86 Year
  Sex: Male
  Weight: 108.86 kg

DRUGS (15)
  1. PRADAXA [Suspect]
     Indication: CEREBROVASCULAR ACCIDENT PROPHYLAXIS
     Dosage: 150 MG
     Route: 065
     Dates: start: 201103, end: 20111230
  2. PRADAXA [Suspect]
     Indication: ATRIAL FIBRILLATION
  3. PRADAXA [Suspect]
     Indication: THROMBOSIS PROPHYLAXIS
  4. GLIPIZID [Concomitant]
     Route: 065
     Dates: start: 1988
  5. LASIX [Concomitant]
     Route: 065
     Dates: start: 1988
  6. ADVICOR [Concomitant]
     Route: 065
     Dates: start: 1988
  7. CARVEDILOL [Concomitant]
     Route: 065
     Dates: start: 1988
  8. SPIRONOLACTONE [Concomitant]
     Route: 065
     Dates: start: 1988
  9. PANTOPRAZOLE [Concomitant]
     Route: 065
     Dates: start: 1988
  10. DIGOXIN [Concomitant]
     Route: 065
     Dates: start: 1988
  11. RAMIPRIL [Concomitant]
     Route: 065
  12. PREVACID [Concomitant]
     Route: 065
  13. LOPRESSOR [Concomitant]
     Route: 065
  14. DILTIAZEM [Concomitant]
     Route: 065
  15. ADVAIR [Concomitant]
     Route: 065

REACTIONS (3)
  - Upper gastrointestinal haemorrhage [Recovered/Resolved]
  - Gastrointestinal haemorrhage [Recovered/Resolved]
  - Anaemia [Unknown]
